FAERS Safety Report 9226275 (Version 5)
Quarter: 2015Q2

REPORT INFORMATION
  Report Type: Spontaneous
  Country: US (occurrence: US)
  Receive Date: 20130411
  Receipt Date: 20150527
  Transmission Date: 20150821
  Serious: Yes (Hospitalization, Other)
  Sender: FDA-Public Use
  Company Number: US-009507513-1304USA002138

PATIENT
  Sex: Female
  Weight: 74.5 kg

DRUGS (5)
  1. ACTOS [Concomitant]
     Active Substance: PIOGLITAZONE HYDROCHLORIDE
     Dosage: UNK
     Dates: start: 1985, end: 2011
  2. METFORMIN [Concomitant]
     Active Substance: METFORMIN HYDROCHLORIDE
     Dosage: UNK
     Dates: start: 1985
  3. FOSAMAX [Suspect]
     Active Substance: ALENDRONATE SODIUM
     Indication: OSTEOPOROSIS
     Dosage: 70 MG, QW
     Route: 048
     Dates: start: 20040103, end: 20080520
  4. ALENDRONATE SODIUM. [Suspect]
     Active Substance: ALENDRONATE SODIUM
     Indication: OSTEOPOROSIS
     Dosage: 70 MG, QW
     Route: 048
     Dates: start: 20080810, end: 20110520
  5. PROCARDIA [Concomitant]
     Active Substance: NIFEDIPINE
     Dosage: UNK
     Dates: start: 1985, end: 2011

REACTIONS (27)
  - Femur fracture [Unknown]
  - Hip fracture [Unknown]
  - Spinal column stenosis [Unknown]
  - Impaired healing [Unknown]
  - Inflammatory bowel disease [Unknown]
  - Osteopenia [Unknown]
  - Anaemia postoperative [Unknown]
  - Back pain [Unknown]
  - Intramedullary rod insertion [Unknown]
  - Femur fracture [Unknown]
  - Gastrooesophageal reflux disease [Unknown]
  - Blood cholesterol increased [Unknown]
  - Gastritis [Unknown]
  - Tooth extraction [Unknown]
  - Fall [Unknown]
  - Dyspnoea exertional [Unknown]
  - Bundle branch block left [Unknown]
  - Malignant melanoma [Unknown]
  - Calcium deficiency [Unknown]
  - Sinus bradycardia [Unknown]
  - Arrhythmia [Unknown]
  - Nausea [Unknown]
  - Vomiting [Unknown]
  - Hyperlipidaemia [Unknown]
  - Medical device removal [Unknown]
  - Vitamin D deficiency [Unknown]
  - Urinary tract obstruction [Unknown]

NARRATIVE: CASE EVENT DATE: 2004
